FAERS Safety Report 4491260-X (Version None)
Quarter: 2004Q4

REPORT INFORMATION
  Report Type: 
  Country: None (occurrence: None)
  Receive Date: 20041027
  Receipt Date: 20041015
  Transmission Date: 20050328
  Serious: Yes (Hospitalization)
  Sender: FDA-Public Use
  Company Number: 2004AC00576

PATIENT
  Age: 30 Year
  Sex: Female

DRUGS (1)
  1. RHINOCORT [Suspect]
     Indication: RHINITIS ALLERGIC
     Dosage: 100 UG BID IN
     Route: 055
     Dates: start: 20040213, end: 20040214

REACTIONS (5)
  - BLISTER [None]
  - DYSPNOEA [None]
  - HYPERSENSITIVITY [None]
  - SWELLING FACE [None]
  - TRACHEAL OEDEMA [None]
